FAERS Safety Report 12242175 (Version 1)
Quarter: 2016Q2

REPORT INFORMATION
  Report Type: Spontaneous
  Country: FR (occurrence: FR)
  Receive Date: 20160406
  Receipt Date: 20160406
  Transmission Date: 20160815
  Serious: Yes (Other)
  Sender: FDA-Public Use
  Company Number: FR-PFIZER INC-2016187731

PATIENT
  Age: 41 Year
  Sex: Male

DRUGS (4)
  1. EFFEXOR [Concomitant]
     Active Substance: VENLAFAXINE HYDROCHLORIDE
     Route: 048
  2. IMUREL /00001501/ [Suspect]
     Active Substance: AZATHIOPRINE SODIUM
     Dosage: 200 MG, 1X/DAY
     Route: 048
     Dates: start: 19980101
  3. SALAZOPYRINE [Suspect]
     Active Substance: SULFASALAZINE
     Dosage: 2 G, 1X/DAY
     Route: 048
     Dates: start: 20020101
  4. XANAX [Concomitant]
     Active Substance: ALPRAZOLAM
     Route: 048

REACTIONS (1)
  - Colorectal carcinoma stage 0 [Recovered/Resolved]

NARRATIVE: CASE EVENT DATE: 20110929
